FAERS Safety Report 7483863-5 (Version None)
Quarter: 2011Q2

REPORT INFORMATION
  Report Type: 
  Country: None (occurrence: None)
  Receive Date: 20110517
  Receipt Date: 20110429
  Transmission Date: 20111010
  Serious: No
  Sender: FDA-Public Use
  Company Number: US-B.I. PHARMACEUTICALS,INC./RIDGEFIELD-2011-BP-04940BP

PATIENT
  Sex: Female

DRUGS (8)
  1. ALENDRONATE SODIUM [Concomitant]
  2. FUROSEMIDE [Concomitant]
  3. LIPITOR [Concomitant]
  4. NIFEDIPINE [Concomitant]
  5. PRADAXA [Suspect]
     Indication: ATRIAL FIBRILLATION
     Dosage: 300 MG
  6. METOPROLOL SUCCINATE [Concomitant]
  7. GEMFIBROZIL [Concomitant]
  8. AVAPRO [Concomitant]

REACTIONS (1)
  - DRY MOUTH [None]
